FAERS Safety Report 6940966-9 (Version None)
Quarter: 2010Q3

REPORT INFORMATION
  Report Type: 
  Country: None (occurrence: None)
  Receive Date: 20100825
  Receipt Date: 20100819
  Transmission Date: 20110219
  Serious: Yes (Death, Hospitalization)
  Sender: FDA-Public Use
  Company Number: A0874699A

PATIENT
  Age: 88 Year
  Sex: Male

DRUGS (11)
  1. PROMACTA [Suspect]
     Indication: IDIOPATHIC THROMBOCYTOPENIC PURPURA
     Route: 048
     Dates: start: 20100310, end: 20100701
  2. CORTICOSTEROIDS [Concomitant]
     Indication: IDIOPATHIC THROMBOCYTOPENIC PURPURA
  3. HUMALOG [Concomitant]
  4. ARICEPT [Concomitant]
  5. PREVACID [Concomitant]
  6. PLAVIX [Concomitant]
  7. SIMVASTATIN [Concomitant]
  8. LANTUS [Concomitant]
  9. POTASSIUM CHLORIDE [Concomitant]
  10. ISOSORBIDE [Concomitant]
  11. LASIX [Concomitant]

REACTIONS (3)
  - CARDIAC ARREST [None]
  - CARDIO-RESPIRATORY ARREST [None]
  - MYOCARDIAL INFARCTION [None]
